FAERS Safety Report 9892786 (Version 2)
Quarter: 2014Q1

REPORT INFORMATION
  Report Type: Spontaneous
  Country: US (occurrence: US)
  Receive Date: 20140212
  Receipt Date: 20140212
  Transmission Date: 20141002
  Serious: Yes (Hospitalization)
  Sender: FDA-Public Use
  Company Number: US-BAXTER-2014BAX006368

PATIENT
  Sex: Female

DRUGS (5)
  1. DIANEAL LOW CALCIUM [Suspect]
     Indication: PERITONEAL DIALYSIS
     Route: 033
     Dates: start: 2013, end: 20140203
  2. DIANEAL LOW CALCIUM [Suspect]
     Route: 033
     Dates: start: 20140205
  3. DIANEAL LOW CALCIUM [Suspect]
     Indication: PERITONEAL DIALYSIS
     Route: 033
     Dates: start: 2013, end: 20140203
  4. DIANEAL LOW CALCIUM [Suspect]
     Route: 033
     Dates: start: 20140205
  5. LASIX [Concomitant]
     Indication: PRODUCT USED FOR UNKNOWN INDICATION
     Route: 048
     Dates: end: 20140203

REACTIONS (2)
  - Dizziness [Recovering/Resolving]
  - Dehydration [Recovering/Resolving]
